FAERS Safety Report 8119512-2 (Version None)
Quarter: 2012Q1

REPORT INFORMATION
  Report Type: 
  Country: None (occurrence: None)
  Receive Date: 20120207
  Receipt Date: 20120130
  Transmission Date: 20120608
  Serious: Yes (Other)
  Sender: FDA-Public Use
  Company Number: PHHY2012IT008092

PATIENT
  Age: 40 Year
  Sex: Male

DRUGS (8)
  1. VALPROIC ACID [Concomitant]
  2. HALOPERIDOL [Concomitant]
     Dosage: 2 MG/DAY
     Dates: start: 20020101
  3. OLANZAPINE [Concomitant]
     Dosage: 20 MG/DAY
  4. CLOZAPINE [Suspect]
     Indication: SCHIZOPHRENIA
     Dosage: UNK
     Dates: start: 20010101
  5. BIPERIDEN HYDROCHLORIDE TAB [Concomitant]
  6. CLOTIAPINE [Concomitant]
     Dosage: 40 MG/DAY
  7. HALOPERIDOL [Concomitant]
     Dosage: 5 MG/DAY
  8. CLONAZEPAM [Concomitant]

REACTIONS (16)
  - DELUSION [None]
  - SPECIFIC GRAVITY URINE ABNORMAL [None]
  - BLOOD SODIUM INCREASED [None]
  - URINARY INCONTINENCE [None]
  - CONSTIPATION [None]
  - CARDIAC FAILURE [None]
  - FOREIGN BODY [None]
  - NAUSEA [None]
  - VOMITING [None]
  - POLYDIPSIA [None]
  - ABNORMAL BEHAVIOUR [None]
  - DRY MOUTH [None]
  - THINKING ABNORMAL [None]
  - POLLAKIURIA [None]
  - THIRST [None]
  - CONFUSIONAL STATE [None]
